FAERS Safety Report 10082071 (Version 2)
Quarter: 2014Q2

REPORT INFORMATION
  Report Type: Spontaneous
  Country: AU (occurrence: AU)
  Receive Date: 20140416
  Receipt Date: 20140515
  Transmission Date: 20141212
  Serious: Yes (Hospitalization)
  Sender: FDA-Public Use
  Company Number: AU-ASTRAZENECA-2014SE26012

PATIENT
  Age: 73 Year
  Sex: Female

DRUGS (10)
  1. ESOMEPRAZOLE MAGNESIUM [Suspect]
     Route: 048
  2. ALENDRONATE PFIZER [Interacting]
  3. CANDESARTAN [Concomitant]
  4. CALCIUM WITH VITAMIN D [Concomitant]
  5. DOSULEPIN [Concomitant]
  6. FLECAINIDE [Concomitant]
  7. LERCANIDIPINE [Concomitant]
  8. FOLIC ACID [Concomitant]
  9. FRUSEMIDE [Concomitant]
  10. WARFARIN [Concomitant]

REACTIONS (2)
  - Drug interaction [Unknown]
  - Femur fracture [Unknown]
